FAERS Safety Report 10250364 (Version 1)
Quarter: 2014Q2

REPORT INFORMATION
  Report Type: Spontaneous
  Country: GB (occurrence: GB)
  Receive Date: 20140620
  Receipt Date: 20140620
  Transmission Date: 20141212
  Serious: Yes (Life-Threatening, Hospitalization)
  Sender: FDA-Public Use
  Company Number: GB-TEVA-488634ISR

PATIENT
  Age: 88 Year
  Sex: Female

DRUGS (7)
  1. AMOXICILLIN [Suspect]
     Dosage: ONE WEEK COURSE BY DOCTOR PRIOR TO HOSPITAL ADMISSION
  2. CLARITHROMYCIN [Suspect]
     Indication: PNEUMONIA
     Route: 048
     Dates: start: 20140531, end: 20140531
  3. CLARITHROMYCIN [Suspect]
     Indication: PNEUMONIA
  4. AUGMENTIN [Suspect]
     Indication: PNEUMONIA
     Route: 042
     Dates: start: 20140530, end: 20140530
  5. AUGMENTIN [Suspect]
     Indication: PNEUMONIA
     Route: 048
     Dates: start: 20140531, end: 20140531
  6. AMOXICILLIN [Suspect]
     Indication: PNEUMONIA
     Route: 048
     Dates: start: 20140531, end: 20140531
  7. CLARITHROMYCIN [Suspect]
     Indication: PNEUMONIA
     Route: 042
     Dates: start: 20140530, end: 20140530

REACTIONS (4)
  - Pallor [Recovering/Resolving]
  - Rash [Recovering/Resolving]
  - Pain in extremity [Recovering/Resolving]
  - Malaise [Recovering/Resolving]
